FAERS Safety Report 8620699-3 (Version None)
Quarter: 2012Q3

REPORT INFORMATION
  Report Type: 
  Country: None (occurrence: None)
  Receive Date: 20120824
  Receipt Date: 20120817
  Transmission Date: 20120928
  Serious: Yes (Hospitalization)
  Sender: FDA-Public Use
  Company Number: JP-B.I. PHARMACEUTICALS,INC./RIDGEFIELD-2012-BP-16110NB

PATIENT
  Age: 9 Decade
  Sex: Female

DRUGS (3)
  1. VERAPAMIL HCL [Suspect]
     Route: 048
     Dates: end: 20120703
  2. ASPIRIN [Suspect]
     Route: 048
     Dates: end: 20120703
  3. PRADAXA [Suspect]
     Indication: ATRIAL FIBRILLATION
     Dosage: 220 MG
     Route: 048
     Dates: start: 20120201, end: 20120703

REACTIONS (5)
  - ACUTE PRERENAL FAILURE [None]
  - ALTERED STATE OF CONSCIOUSNESS [None]
  - DEHYDRATION [None]
  - SHOCK HAEMORRHAGIC [None]
  - GASTROINTESTINAL HAEMORRHAGE [None]
